FAERS Safety Report 25059717 (Version 1)
Quarter: 2025Q1

REPORT INFORMATION
  Report Type: Spontaneous
  Country: US (occurrence: None)
  Receive Date: 20250308
  Receipt Date: 20250308
  Transmission Date: 20250409
  Serious: Yes (Other)
  Sender: FDA-CTU
  Company Number: None

PATIENT
  Age: 34 Year
  Sex: Female
  Weight: 63.5 kg

DRUGS (1)
  1. BRIXADI [Suspect]
     Active Substance: BUPRENORPHINE
     Indication: Product used for unknown indication
     Route: 058
     Dates: start: 20250305

REACTIONS (6)
  - Vomiting [None]
  - Fatigue [None]
  - Somnolence [None]
  - Dysarthria [None]
  - Confusional state [None]
  - Diplopia [None]

NARRATIVE: CASE EVENT DATE: 20250306
